FAERS Safety Report 25441853 (Version 2)
Quarter: 2025Q2

REPORT INFORMATION
  Report Type: Spontaneous
  Country: CZ (occurrence: CZ)
  Receive Date: 20250616
  Receipt Date: 20250618
  Transmission Date: 20250716
  Serious: Yes (Life-Threatening, Hospitalization, Other)
  Sender: NOVARTIS
  Company Number: None

PATIENT
  Age: 36 Year
  Sex: Female
  Weight: 53 kg

DRUGS (7)
  1. KESIMPTA [Suspect]
     Active Substance: OFATUMUMAB
     Indication: Multiple sclerosis
     Dosage: 20 MG, QD (ONCE A DAY)
     Route: 058
     Dates: start: 20240119, end: 20241008
  2. Viregyt k [Concomitant]
     Indication: Infection prophylaxis
     Route: 065
  3. MAGNESIUM CARBONATE\MAGNESIUM OXIDE [Concomitant]
     Active Substance: MAGNESIUM CARBONATE\MAGNESIUM OXIDE
     Indication: Muscle spasticity
     Dosage: UNK, QD (ONCE A DAY 1 TABLET, LONG TERM)
     Route: 065
  4. MIRENA [Concomitant]
     Active Substance: LEVONORGESTREL
     Indication: Contraception
     Route: 065
  5. ROPINIROLE [Concomitant]
     Active Substance: ROPINIROLE
     Indication: Restless legs syndrome
     Dosage: UNK, QD (ONCE A DAY IN THE EVENING 2 TABLETS, LONG TERM)
     Route: 065
  6. Vigantol [Concomitant]
     Indication: Product used for unknown indication
     Dosage: UNK, QW (28 DROPS A WEEK)
     Route: 065
  7. Baclofen polpharma [Concomitant]
     Indication: Muscle spasticity
     Route: 065

REACTIONS (1)
  - Meningitis aseptic [Unknown]

NARRATIVE: CASE EVENT DATE: 20241120
